FAERS Safety Report 10852590 (Version 1)
Quarter: 2015Q1

REPORT INFORMATION
  Report Type: Spontaneous
  Country: US (occurrence: US)
  Receive Date: 20150222
  Receipt Date: 20150222
  Transmission Date: 20150721
  Serious: No
  Sender: FDA-Public Use
  Company Number: US-ALLERGAN-1420438US

PATIENT
  Sex: Female

DRUGS (1)
  1. BOTOX [Suspect]
     Active Substance: ONABOTULINUMTOXINA
     Indication: FACIAL SPASM
     Dosage: UNK, SINGLE
     Dates: start: 201312, end: 201312

REACTIONS (2)
  - Facial paresis [Not Recovered/Not Resolved]
  - Asthenia [Not Recovered/Not Resolved]
